FAERS Safety Report 5894446-2 (Version None)
Quarter: 2008Q3

REPORT INFORMATION
  Report Type: 
  Country: None (occurrence: None)
  Receive Date: 20080923
  Receipt Date: 20080923
  Transmission Date: 20090109
  Serious: Yes (Life-Threatening)
  Sender: FDA-Public Use
  Company Number: None

PATIENT
  Age: 44 Year
  Sex: Male
  Weight: 99.4 kg

DRUGS (3)
  1. MEPERIDINE HCL [Suspect]
     Indication: PROCEDURAL PAIN
     Dosage: 75 MG ONCE IV
     Route: 042
     Dates: start: 20080801, end: 20080801
  2. MEPERIDINE HCL [Suspect]
     Indication: SEDATION
     Dosage: 75 MG ONCE IV
     Route: 042
     Dates: start: 20080801, end: 20080801
  3. MIDAZOLAM HCL [Suspect]
     Indication: PROCEDURAL PAIN
     Dosage: 3 MG ONCE IV
     Route: 042
     Dates: start: 20080801, end: 20080801

REACTIONS (1)
  - HYPOXIA [None]
